FAERS Safety Report 8569208-8 (Version None)
Quarter: 2012Q3

REPORT INFORMATION
  Report Type: 
  Country: None (occurrence: None)
  Receive Date: 20120803
  Receipt Date: 20120618
  Transmission Date: 20120928
  Serious: No
  Sender: FDA-Public Use
  Company Number: US-ABBOTT-12P-163-0947129-00

PATIENT
  Sex: Male

DRUGS (1)
  1. NIASPAN [Suspect]
     Indication: PRODUCT USED FOR UNKNOWN INDICATION
     Dosage: 500MG AT NIGHT
     Dates: start: 20120617

REACTIONS (3)
  - DIARRHOEA [None]
  - BOWEL MOVEMENT IRREGULARITY [None]
  - ABDOMINAL PAIN UPPER [None]
